FAERS Safety Report 7232155-8 (Version None)
Quarter: 2011Q1

REPORT INFORMATION
  Report Type: 
  Country: None (occurrence: None)
  Receive Date: 20110119
  Receipt Date: 20090925
  Transmission Date: 20110831
  Serious: No
  Sender: FDA-Public Use
  Company Number: 2009BI031049

PATIENT
  Age: 64 Year
  Sex: Female

DRUGS (1)
  1. TYSABRI [Suspect]
     Indication: MULTIPLE SCLEROSIS
     Route: 042
     Dates: start: 20090218

REACTIONS (6)
  - FATIGUE [None]
  - DYSPHONIA [None]
  - COUGH [None]
  - BACK PAIN [None]
  - MUSCLE SPASMS [None]
  - ABDOMINAL PAIN [None]
